FAERS Safety Report 10267207 (Version 1)
Quarter: 2014Q2

REPORT INFORMATION
  Report Type: Spontaneous
  Country: US (occurrence: None)
  Receive Date: 20140625
  Receipt Date: 20140625
  Transmission Date: 20141212
  Serious: Yes (Life-Threatening)
  Sender: FDA-Public Use
  Company Number: US-H14001-14-00096

PATIENT
  Sex: Male

DRUGS (1)
  1. PHENYLEPHRINE HCL INJECTION USP (PHENYLEPHRINE HYDROCHLORIDE) (INJECTION) (PHENYLEPHRINE HYDROCHLORIDE) [Suspect]
     Indication: PRODUCT USED FOR UNKNOWN INDICATION
     Route: 042

REACTIONS (3)
  - Cardio-respiratory arrest [None]
  - Cardiac arrest [None]
  - Pulmonary oedema [None]
